FAERS Safety Report 25868531 (Version 2)
Quarter: 2025Q4

REPORT INFORMATION
  Report Type: Spontaneous
  Country: US (occurrence: US)
  Receive Date: 20251001
  Receipt Date: 20251006
  Transmission Date: 20260118
  Serious: Yes (Other)
  Sender: Haleon PLC
  Company Number: US-HALEON-2265594

PATIENT
  Age: 34 Year
  Sex: Female

DRUGS (2)
  1. THERAFLU SEVERE COLD RELIEF DAYTIME BERRY BURST [Suspect]
     Active Substance: ACETAMINOPHEN\DEXTROMETHORPHAN HYDROBROMIDE\PHENYLEPHRINE HYDROCHLORIDE
     Indication: Nasopharyngitis
     Dosage: 1 - APPLICATION
     Dates: start: 20250924
  2. THERAFLU SEVERE COLD RELIEF DAYTIME BERRY BURST [Suspect]
     Active Substance: ACETAMINOPHEN\DEXTROMETHORPHAN HYDROBROMIDE\PHENYLEPHRINE HYDROCHLORIDE
     Indication: Nasopharyngitis
     Dosage: 1 - APPLICATION
     Dates: start: 20250924

REACTIONS (5)
  - Hallucination [Recovered/Resolved]
  - Urinary retention [Recovered/Resolved]
  - Nasal congestion [Recovered/Resolved]
  - Dyspnoea [Recovered/Resolved]
  - Anxiety [Recovered/Resolved]
